FAERS Safety Report 18924607 (Version 2)
Quarter: 2021Q1

REPORT INFORMATION
  Report Type: Report from Study
  Country: US (occurrence: US)
  Receive Date: 20210222
  Receipt Date: 20210223
  Transmission Date: 20210420
  Serious: Yes (Other)
  Sender: FDA-Public Use
  Company Number: US-PFIZER INC-2021161433

PATIENT
  Age: 75 Year
  Sex: Female
  Weight: 61.2 kg

DRUGS (6)
  1. RYTARY [Concomitant]
     Active Substance: CARBIDOPA\LEVODOPA
     Dosage: UNK
     Dates: end: 20210110
  2. GOCOVRI [Suspect]
     Active Substance: AMANTADINE
     Dosage: 274 MG, 1X/DAY 1X/DAY AT BEDTIME, ORAL)
     Route: 048
     Dates: start: 20180712
  3. VANTIN [Suspect]
     Active Substance: CEFPODOXIME PROXETIL
     Indication: URINARY TRACT INFECTION
     Dosage: UNK
     Dates: start: 202101
  4. RYTARY [Concomitant]
     Active Substance: CARBIDOPA\LEVODOPA
     Dosage: UNK
     Dates: start: 20210111
  5. GOCOVRI [Suspect]
     Active Substance: AMANTADINE
     Indication: DYSKINESIA
     Dosage: 68.5 MG
     Dates: start: 20180712
  6. FUROSEMIDE. [Concomitant]
     Active Substance: FUROSEMIDE
     Dosage: UNK

REACTIONS (6)
  - Ischaemic stroke [Recovering/Resolving]
  - Transient ischaemic attack [Recovered/Resolved]
  - Paralysis [Not Recovered/Not Resolved]
  - Fungal infection [Recovered/Resolved]
  - Transient ischaemic attack [Recovering/Resolving]
  - Urinary tract infection [Recovered/Resolved]

NARRATIVE: CASE EVENT DATE: 202101
